FAERS Safety Report 13140164 (Version 1)
Quarter: 2017Q1

REPORT INFORMATION
  Report Type: Spontaneous
  Country: US (occurrence: US)
  Receive Date: 20170123
  Receipt Date: 20170123
  Transmission Date: 20170428
  Serious: Yes (Hospitalization)
  Sender: FDA-Public Use
  Company Number: US-UNITED THERAPEUTICS-UNT-2016-014925

PATIENT
  Age: 4 Month
  Sex: Male
  Weight: 5.9 kg

DRUGS (2)
  1. REMODULIN [Suspect]
     Active Substance: TREPROSTINIL
     Indication: PULMONARY ARTERIAL HYPERTENSION
     Dosage: 0.02593 ?G/KG, CONTINUING
     Route: 058
     Dates: start: 20160708
  2. REVATIO [Concomitant]
     Active Substance: SILDENAFIL CITRATE
     Indication: PRODUCT USED FOR UNKNOWN INDICATION

REACTIONS (3)
  - Infusion site induration [Recovered/Resolved]
  - Infusion site erythema [Recovered/Resolved]
  - Infusion site abscess [Recovered/Resolved]

NARRATIVE: CASE EVENT DATE: 201609
